FAERS Safety Report 8355097-3 (Version None)
Quarter: 2012Q2

REPORT INFORMATION
  Report Type: 
  Country: None (occurrence: None)
  Receive Date: 20120511
  Receipt Date: 20120507
  Transmission Date: 20120825
  Serious: Yes (Other)
  Sender: FDA-Public Use
  Company Number: RS-BAXTER-2012BAX005034

PATIENT
  Age: 10 Year
  Sex: Female

DRUGS (8)
  1. MESNA [Concomitant]
     Indication: PROPHYLAXIS
     Route: 042
  2. MEROPENEM [Concomitant]
     Indication: PROPHYLAXIS
  3. HOLOXAN  2 G [Suspect]
     Route: 042
  4. DACTINOMYCIN [Concomitant]
     Route: 042
  5. ACETYLCYSTEINE [Concomitant]
     Indication: PROPHYLAXIS
     Route: 042
  6. MORPHINE [Concomitant]
  7. VINCRISTINE [Concomitant]
     Route: 042
  8. ONDANSETRON [Concomitant]
     Indication: PROPHYLAXIS

REACTIONS (3)
  - TUMOUR LYSIS SYNDROME [None]
  - NEPHROPATHY TOXIC [None]
  - ENCEPHALOPATHY [None]
